FAERS Safety Report 19681506 (Version 1)
Quarter: 2021Q3

REPORT INFORMATION
  Report Type: Spontaneous
  Country: GB (occurrence: GB)
  Receive Date: 20210810
  Receipt Date: 20210810
  Transmission Date: 20211014
  Serious: Yes (Other)
  Sender: FDA-Public Use
  Company Number: GB-ALLERGAN-2127586US

PATIENT
  Sex: Female
  Weight: 81.18 kg

DRUGS (2)
  1. CITALOPRAM HYDROBROMIDE ? BP [Suspect]
     Active Substance: CITALOPRAM HYDROBROMIDE
     Indication: ANXIETY
     Route: 048
     Dates: start: 20210601, end: 20210705
  2. PROPRANOLOL [Concomitant]
     Active Substance: PROPRANOLOL HYDROCHLORIDE
     Indication: PRODUCT USED FOR UNKNOWN INDICATION
     Route: 065

REACTIONS (5)
  - Dissociation [Recovering/Resolving]
  - Off label use [Unknown]
  - Nightmare [Recovered/Resolved]
  - Somnolence [Recovering/Resolving]
  - Apathy [Recovered/Resolved]

NARRATIVE: CASE EVENT DATE: 20210602
